FAERS Safety Report 5055001-X (Version None)
Quarter: 2006Q3

REPORT INFORMATION
  Report Type: 
  Country: None (occurrence: None)
  Receive Date: 20060719
  Receipt Date: 20060711
  Transmission Date: 20061208
  Serious: Yes (Hospitalization)
  Sender: FDA-Public Use
  Company Number: FR-GLAXOSMITHKLINE-B0430840A

PATIENT
  Age: 79 Year
  Sex: Male

DRUGS (5)
  1. AUGMENTIN '125' [Suspect]
     Indication: ERYSIPELAS
     Dates: start: 20051209, end: 20051210
  2. GARDENAL 100 [Concomitant]
     Route: 065
  3. SPECIAFOLDINE [Concomitant]
     Route: 065
  4. FUROSEMIDE [Concomitant]
     Route: 065
  5. DIFFU K [Concomitant]
     Route: 065

REACTIONS (13)
  - ABDOMINAL SYMPTOM [None]
  - ASCITES [None]
  - CHOLESTASIS [None]
  - DECUBITUS ULCER [None]
  - DERMATITIS BULLOUS [None]
  - ERYTHEMA [None]
  - HYPOALBUMINAEMIA [None]
  - LEUKOCYTOSIS [None]
  - OEDEMA PERIPHERAL [None]
  - PURPURA [None]
  - RENAL FAILURE [None]
  - SKIN DISORDER [None]
  - TOXIC SKIN ERUPTION [None]
